FAERS Safety Report 5819953-X (Version None)
Quarter: 2008Q3

REPORT INFORMATION
  Report Type: 
  Country: None (occurrence: None)
  Receive Date: 20080723
  Receipt Date: 20080718
  Transmission Date: 20090109
  Serious: Yes (Life-Threatening, Hospitalization)
  Sender: FDA-Public Use
  Company Number: CH-WYE-G01880808

PATIENT
  Age: 79 Year
  Sex: Female
  Weight: 32 kg

DRUGS (6)
  1. METHOTREXATE SODIUM [Suspect]
     Indication: RHEUMATOID ARTHRITIS
     Route: 048
     Dates: end: 20080507
  2. CORDARONE [Suspect]
     Indication: ATRIAL FIBRILLATION
     Route: 048
  3. CORDARONE [Suspect]
     Indication: ATRIAL FLUTTER
  4. MARCUMAR [Concomitant]
     Dosage: 3 MG, FREQUENCY UNKNOWN
     Route: 048
  5. METOPROLOL TARTRATE [Concomitant]
     Route: 048
  6. COZAAR [Concomitant]
     Dosage: DOSE AND FREQUENCY UNKNOWN
     Route: 048

REACTIONS (5)
  - CHEST PAIN [None]
  - COUGH [None]
  - NIGHT SWEATS [None]
  - PNEUMONITIS [None]
  - PYREXIA [None]
